FAERS Safety Report 8576165-7 (Version None)
Quarter: 2012Q3

REPORT INFORMATION
  Report Type: 
  Country: None (occurrence: None)
  Receive Date: 20120807
  Receipt Date: 20120731
  Transmission Date: 20120928
  Serious: No
  Sender: FDA-Public Use
  Company Number: US-PFIZER INC-2012096554

PATIENT
  Age: 77 Year
  Sex: Female
  Weight: 72.562 kg

DRUGS (1)
  1. LATANOPROST [Suspect]
     Indication: GLAUCOMA
     Dosage: ONE DROP IN BOTH THE EYES ONCE DAILY
     Route: 047
     Dates: start: 20120201

REACTIONS (2)
  - DRY EYE [None]
  - INCORRECT DOSE ADMINISTERED [None]
